FAERS Safety Report 8854393 (Version 1)
Quarter: 2012Q4

REPORT INFORMATION
  Report Type: 
  Country: US (occurrence: US)
  Receive Date: 20121023
  Receipt Date: 20121023
  Transmission Date: 20130627
  Serious: No
  Sender: FDA-Public Use
  Company Number: US-VERTEX PHARMACEUTICAL INC.-2012-023075

PATIENT
  Sex: Male
  Weight: 82 kg

DRUGS (7)
  1. VX-950 [Suspect]
     Indication: HEPATITIS C
     Dosage: 750 mg, tid
     Route: 048
     Dates: start: 2012
  2. RIBASPHERE [Concomitant]
     Indication: HEPATITIS C
     Dosage: 3 DF, bid
     Route: 048
     Dates: start: 2012
  3. PEGASYS [Concomitant]
     Indication: HEPATITIS C
     Dosage: 180 ?g, weekly
     Route: 058
     Dates: start: 2012
  4. AMBIEN CR [Concomitant]
     Dosage: daily HS
  5. LANTUS [Concomitant]
     Dosage: 5 ut, qd
     Route: 058
  6. HYDROXYZINE HCL [Concomitant]
  7. OMEPRAZOLE [Concomitant]
     Dosage: 20 mg, qd

REACTIONS (1)
  - Liver disorder [Unknown]
